FAERS Safety Report 6420640-8 (Version None)
Quarter: 2009Q4

REPORT INFORMATION
  Report Type: 
  Country: None (occurrence: None)
  Receive Date: 20091027
  Receipt Date: 20091021
  Transmission Date: 20100525
  Serious: Yes (Life-Threatening, Hospitalization)
  Sender: FDA-Public Use
  Company Number: 232076K09USA

PATIENT
  Age: 46 Year
  Sex: Male
  Weight: 88 kg

DRUGS (1)
  1. REBIF [Suspect]
     Indication: MULTIPLE SCLEROSIS
     Dosage: 44 MCG, 3 IN 1 WEEKS, SUBCUTANEOUS
     Route: 058
     Dates: start: 20081209

REACTIONS (22)
  - DECUBITUS ULCER [None]
  - DEPRESSED LEVEL OF CONSCIOUSNESS [None]
  - DYSPNOEA [None]
  - FAECAL INCONTINENCE [None]
  - FALL [None]
  - HEART RATE DECREASED [None]
  - HYPOTENSION [None]
  - MENTAL STATUS CHANGES [None]
  - MULTIPLE SCLEROSIS RELAPSE [None]
  - MUSCLE ATROPHY [None]
  - NEUROGENIC BLADDER [None]
  - NO THERAPEUTIC RESPONSE [None]
  - OSTEOMYELITIS [None]
  - RHINITIS [None]
  - SEPSIS [None]
  - SKIN LACERATION [None]
  - STAPHYLOCOCCAL INFECTION [None]
  - UNRESPONSIVE TO STIMULI [None]
  - URINARY INCONTINENCE [None]
  - URINARY TRACT INFECTION STAPHYLOCOCCAL [None]
  - VISUAL IMPAIRMENT [None]
  - WHEELCHAIR USER [None]
